FAERS Safety Report 9190046 (Version 3)
Quarter: 2013Q4

REPORT INFORMATION
  Report Type: Spontaneous
  Country: US (occurrence: US)
  Receive Date: 20130326
  Receipt Date: 20131223
  Transmission Date: 20140711
  Serious: Yes (Other)
  Sender: FDA-Public Use
  Company Number: US-PFIZER INC-2013092895

PATIENT
  Age: 82 Year
  Sex: Male

DRUGS (2)
  1. SUTENT [Suspect]
     Indication: RENAL CELL CARCINOMA
     Dosage: 25 MG, CYCLIC (28 DAYS ON AND 14 DAYS OFF)
     Dates: start: 20130205, end: 2013
  2. ZOMETA [Concomitant]
     Dosage: UNK
     Route: 042

REACTIONS (9)
  - Ophthalmic herpes zoster [Unknown]
  - Herpes zoster oticus [Not Recovered/Not Resolved]
  - White blood cell count decreased [Recovered/Resolved]
  - Fall [Recovered/Resolved]
  - Balance disorder [Recovered/Resolved]
  - Feeling drunk [Unknown]
  - Ear discomfort [Recovering/Resolving]
  - Disease progression [Unknown]
  - Renal cell carcinoma [Unknown]
